FAERS Safety Report 9539396 (Version 1)
Quarter: 2013Q3

REPORT INFORMATION
  Report Type: Report from Study
  Country: US (occurrence: US)
  Receive Date: 20130920
  Receipt Date: 20130920
  Transmission Date: 20140515
  Serious: Yes (Death, Life-Threatening, Hospitalization)
  Sender: FDA-Public Use
  Company Number: US-SANOFI-AVENTIS-2013SA090520

PATIENT
  Age: 67 Year
  Sex: Male
  Weight: 60.9 kg

DRUGS (15)
  1. DOCETAXEL [Suspect]
     Indication: PROSTATE CANCER METASTATIC
     Route: 065
     Dates: start: 20130806, end: 20130806
  2. DOCETAXEL [Suspect]
     Indication: PROSTATE CANCER METASTATIC
     Route: 065
     Dates: start: 20130827, end: 20130827
  3. PREDNISONE [Suspect]
     Indication: PROSTATE CANCER METASTATIC
     Route: 065
     Dates: start: 20130806, end: 20130806
  4. PREDNISONE [Suspect]
     Indication: PROSTATE CANCER METASTATIC
     Route: 065
     Dates: start: 20130906, end: 20130906
  5. PROCHLORPERAZINE [Concomitant]
     Route: 048
  6. PROTONIX [Concomitant]
     Route: 048
  7. ANTIBIOTICS [Concomitant]
  8. IBUPROFEN [Concomitant]
     Indication: NECK PAIN
     Route: 065
  9. DEXAMETHASONE [Concomitant]
     Route: 065
  10. COMPAZINE [Concomitant]
     Indication: NAUSEA
     Route: 065
  11. COMPAZINE [Concomitant]
     Indication: VOMITING
     Route: 065
  12. CENTRUM SILVER [Concomitant]
     Route: 065
  13. OXYCODONE [Concomitant]
     Route: 065
  14. DECADRON [Concomitant]
     Route: 065
  15. ZOSYN [Concomitant]

REACTIONS (3)
  - Respiratory failure [Fatal]
  - Pneumoperitoneum [Not Recovered/Not Resolved]
  - Small intestinal obstruction [Not Recovered/Not Resolved]
